FAERS Safety Report 7869016-7 (Version None)
Quarter: 2011Q4

REPORT INFORMATION
  Report Type: 
  Country: None (occurrence: None)
  Receive Date: 20111028
  Receipt Date: 20101223
  Transmission Date: 20120403
  Serious: No
  Sender: FDA-Public Use
  Company Number: US-AMGEN-USASP2010011013

PATIENT
  Age: 60 Year

DRUGS (10)
  1. CARVEDILOL [Concomitant]
     Dosage: 6.25 MG, UNK
  2. ENBREL [Suspect]
     Indication: PRODUCT USED FOR UNKNOWN INDICATION
     Dosage: 50 MG, QWK
     Route: 058
  3. DIGOXIN [Concomitant]
     Dosage: .25 MG, UNK
  4. LASIX [Concomitant]
     Dosage: 40 MG, UNK
  5. LISINOPRIL [Concomitant]
     Dosage: 5 MG, UNK
  6. POTASSIUM [Concomitant]
  7. COUMADIN [Concomitant]
     Dosage: 5 MG, UNK
  8. VITAMIN B CO ALMUS [Concomitant]
  9. PRAVASTATIN [Concomitant]
     Dosage: UNK
     Dates: start: 20101221
  10. MULTIPLE VITAMINS [Concomitant]

REACTIONS (1)
  - OEDEMA PERIPHERAL [None]
